FAERS Safety Report 4864647-0 (Version None)
Quarter: 2005Q4

REPORT INFORMATION
  Report Type: 
  Country: None (occurrence: None)
  Receive Date: 20051201
  Receipt Date: 20050706
  Transmission Date: 20060501
  Serious: No
  Sender: FDA-Public Use
  Company Number: 2005PV000250

PATIENT
  Age: 58 Year
  Sex: Male
  Weight: 113.3993 kg

DRUGS (13)
  1. BYETTA [Suspect]
     Indication: DIABETES MELLITUS NON-INSULIN-DEPENDENT
     Dosage: 5 MCG; BID; SC
     Route: 058
     Dates: start: 20050702
  2. NOVOLOG [Concomitant]
  3. NPH INSULIN [Concomitant]
  4. MIGLITOL [Concomitant]
  5. TRICOR [Concomitant]
  6. COZAAR [Concomitant]
  7. FOLTX [Concomitant]
  8. PLAVIX [Concomitant]
  9. ZOCOR [Concomitant]
  10. NORVASC [Concomitant]
  11. SOTALOL HCL [Concomitant]
  12. NEXIUM [Concomitant]
  13. CENTRUM [Concomitant]

REACTIONS (7)
  - DECREASED APPETITE [None]
  - DIARRHOEA [None]
  - DIZZINESS [None]
  - DYSPEPSIA [None]
  - EARLY SATIETY [None]
  - NAUSEA [None]
  - STOMACH DISCOMFORT [None]
